FAERS Safety Report 15435743 (Version 1)
Quarter: 2018Q3

REPORT INFORMATION
  Report Type: Spontaneous
  Country: HR (occurrence: HR)
  Receive Date: 20180927
  Receipt Date: 20180927
  Transmission Date: 20181010
  Serious: Yes (Hospitalization, Other)
  Sender: FDA-Public Use
  Company Number: HR-SA-2018SA262575

PATIENT
  Age: 47 Year
  Sex: Male

DRUGS (2)
  1. ZALTRAP [Suspect]
     Active Substance: ZIV-AFLIBERCEPT
     Indication: COLORECTAL CANCER METASTATIC
     Dosage: UNK
     Route: 042
     Dates: start: 201803, end: 201803
  2. ZALTRAP [Suspect]
     Active Substance: ZIV-AFLIBERCEPT
     Dosage: UNK, QCY
     Route: 042
     Dates: start: 201808, end: 201808

REACTIONS (4)
  - Leukopenia [Unknown]
  - Blood pressure increased [Unknown]
  - Acute kidney injury [Unknown]
  - Oedema peripheral [Unknown]

NARRATIVE: CASE EVENT DATE: 201808
